FAERS Safety Report 18730119 (Version 1)
Quarter: 2021Q1

REPORT INFORMATION
  Report Type: Spontaneous
  Country: US (occurrence: US)
  Receive Date: 20210112
  Receipt Date: 20210112
  Transmission Date: 20210419
  Serious: Yes (Death, Hospitalization)
  Sender: FDA-Public Use
  Company Number: US-PFIZER INC-2021014782

PATIENT
  Age: 33 Year
  Sex: Male

DRUGS (1)
  1. VENLAFAXINE HCL [Suspect]
     Active Substance: VENLAFAXINE HYDROCHLORIDE
     Dosage: 157 DF (INGESTED 157 VENLAFAXINE 150MG XL)
     Route: 048

REACTIONS (2)
  - Treatment noncompliance [Unknown]
  - Completed suicide [Fatal]

NARRATIVE: CASE EVENT DATE: 2019
